FAERS Safety Report 18415841 (Version 1)
Quarter: 2020Q4

REPORT INFORMATION
  Report Type: Spontaneous
  Country: US (occurrence: US)
  Receive Date: 20201022
  Receipt Date: 20201022
  Transmission Date: 20210114
  Serious: No
  Sender: FDA-Public Use
  Company Number: US-PFIZER INC-2020407657

PATIENT
  Age: 65 Year
  Sex: Female

DRUGS (1)
  1. PREMARIN [Suspect]
     Active Substance: ESTROGENS, CONJUGATED
     Dosage: UNK, (THREE TIMES A WEEK)

REACTIONS (4)
  - Restlessness [Unknown]
  - Off label use [Unknown]
  - Atrophic vulvovaginitis [Unknown]
  - Vulvovaginal pain [Unknown]
